FAERS Safety Report 9731205 (Version 1)
Quarter: 2013Q4

REPORT INFORMATION
  Report Type: Spontaneous
  Country: US (occurrence: US)
  Receive Date: 20131203
  Receipt Date: 20131203
  Transmission Date: 20140711
  Serious: Yes (Hospitalization)
  Sender: FDA-Public Use
  Company Number: US-ASTRAZENECA-2013SE86994

PATIENT
  Age: 70 Year
  Sex: Male
  Weight: 95.3 kg

DRUGS (7)
  1. ATENOLOL [Suspect]
     Indication: CARDIAC DISORDER
     Route: 065
     Dates: start: 2010
  2. ATENOLOL [Suspect]
     Indication: CARDIAC DISORDER
     Dosage: ONE HALF OF 25 MG DAILY
     Route: 065
     Dates: end: 201310
  3. CRESTOR [Suspect]
     Indication: PAIN
     Route: 048
  4. CRESTOR [Suspect]
     Indication: ARTERIAL OCCLUSIVE DISEASE
     Route: 048
  5. TAMSULOSIN [Concomitant]
     Indication: BENIGN PROSTATIC HYPERPLASIA
  6. TAMSULOSIN [Concomitant]
     Indication: PROSTATOMEGALY
  7. BACTRIM [Concomitant]

REACTIONS (10)
  - Cardiac disorder [Unknown]
  - Generalised oedema [Not Recovered/Not Resolved]
  - Respiratory tract congestion [Not Recovered/Not Resolved]
  - Peripheral coldness [Unknown]
  - Peripheral coldness [Unknown]
  - Head discomfort [Not Recovered/Not Resolved]
  - Headache [Not Recovered/Not Resolved]
  - Memory impairment [Not Recovered/Not Resolved]
  - Dizziness [Unknown]
  - Intentional drug misuse [Recovered/Resolved]
